FAERS Safety Report 18557160 (Version 1)
Quarter: 2020Q4

REPORT INFORMATION
  Report Type: Spontaneous
  Country: RO (occurrence: RO)
  Receive Date: 20201129
  Receipt Date: 20201129
  Transmission Date: 20210114
  Serious: Yes (Hospitalization, Other)
  Sender: FDA-Public Use
  Company Number: RO-BRISTOL-MYERS SQUIBB COMPANY-BMS-2020-099638

PATIENT
  Age: 63 Year
  Sex: Female

DRUGS (1)
  1. HYDROXYUREA. [Suspect]
     Active Substance: HYDROXYUREA
     Indication: CHRONIC MYELOID LEUKAEMIA
     Dosage: UNK
     Route: 065

REACTIONS (7)
  - Nail pigmentation [Unknown]
  - Skin ulcer [Unknown]
  - Staphylococcal infection [Unknown]
  - Culture urine positive [Unknown]
  - Dry skin [Unknown]
  - Proteus infection [Unknown]
  - Superinfection [Unknown]
